FAERS Safety Report 16885189 (Version 1)
Quarter: 2019Q4

REPORT INFORMATION
  Report Type: Spontaneous
  Country: US (occurrence: US)
  Receive Date: 20190808
  Receipt Date: 20190808
  Transmission Date: 20200122
  Serious: Yes (Disabling)
  Sender: FDA-Public Use
  Company Number: None

PATIENT
  Age: 68 Year
  Sex: Female
  Weight: 100.1 kg

DRUGS (1)
  1. ARIMIDEX [Suspect]
     Active Substance: ANASTROZOLE
     Dates: start: 20170606

REACTIONS (4)
  - Laboratory test abnormal [None]
  - Arthralgia [None]
  - Oedema peripheral [None]
  - Depression [None]

NARRATIVE: CASE EVENT DATE: 20190606
